FAERS Safety Report 8165515-1 (Version None)
Quarter: 2012Q1

REPORT INFORMATION
  Report Type: 
  Country: None (occurrence: None)
  Receive Date: 20120103
  Receipt Date: 20111028
  Transmission Date: 20120608
  Serious: No
  Sender: FDA-Public Use
  Company Number: AE-2011-002223

PATIENT
  Age: 60 Year
  Sex: Male
  Weight: 83.9154 kg

DRUGS (7)
  1. MULTI-VITAMINS [Concomitant]
  2. RIBAVIRIN [Concomitant]
  3. XANAX [Concomitant]
  4. INCIVEK [Suspect]
     Dosage: 2250 MG (750 MG, 1 IN 8 HR), ORAL
     Route: 048
     Dates: start: 20111002
  5. PEGASYS [Concomitant]
  6. TRAZODONE HCL [Concomitant]
  7. IBUPROFEN [Concomitant]

REACTIONS (8)
  - INAPPROPRIATE SCHEDULE OF DRUG ADMINISTRATION [None]
  - DIZZINESS [None]
  - FEELING ABNORMAL [None]
  - PRURITUS [None]
  - BLOOD TEST ABNORMAL [None]
  - HEADACHE [None]
  - JAUNDICE [None]
  - HAEMORRHOIDS [None]
